FAERS Safety Report 11244892 (Version 2)
Quarter: 2015Q3

REPORT INFORMATION
  Report Type: Report from Study
  Country: DE (occurrence: DE)
  Receive Date: 20150707
  Receipt Date: 20150714
  Transmission Date: 20151125
  Serious: Yes (Hospitalization)
  Sender: FDA-Public Use
  Company Number: DE-BAXALTA-2015BLT000143

PATIENT
  Age: 24 Year
  Weight: 115 kg

DRUGS (4)
  1. OCTOCOG ALFA; BAXJECT II [Suspect]
     Active Substance: ANTIHEMOPHILIC FACTOR, HUMAN RECOMBINANT
     Indication: FACTOR VIII DEFICIENCY
     Dosage: 3000 IU, AS NEEDED
     Route: 042
     Dates: start: 200406
  2. OCTOCOG ALFA; BAXJECT II [Suspect]
     Active Substance: ANTIHEMOPHILIC FACTOR, HUMAN RECOMBINANT
     Indication: PROPHYLAXIS
  3. SALBUTAMOL [Concomitant]
     Active Substance: ALBUTEROL
     Indication: ASTHMA
     Dosage: UNK UNK, AS NEEDED
     Route: 055
  4. ARCOXIA [Concomitant]
     Active Substance: ETORICOXIB
     Indication: ANTIINFLAMMATORY THERAPY
     Dosage: 60 MG, ON DEMAND
     Route: 048
     Dates: start: 20131205

REACTIONS (1)
  - Tooth impacted [Recovered/Resolved]

NARRATIVE: CASE EVENT DATE: 201208
